FAERS Safety Report 11116744 (Version 2)
Quarter: 2016Q4

REPORT INFORMATION
  Report Type: Report from Study
  Country: FR (occurrence: FR)
  Receive Date: 20150515
  Receipt Date: 20161020
  Transmission Date: 20170206
  Serious: Yes (Death, Hospitalization, Other)
  Sender: FDA-Public Use
  Company Number: FR-ASTELLAS-2015US007243

PATIENT
  Age: 5 Year
  Sex: Female
  Weight: 34 kg

DRUGS (5)
  1. ERLOTINIB [Suspect]
     Active Substance: ERLOTINIB
     Indication: GLIOMA
     Route: 048
     Dates: start: 20141215, end: 20150220
  2. BACTRIM [Concomitant]
     Active Substance: SULFAMETHOXAZOLE\TRIMETHOPRIM
     Indication: LYMPHOPENIA
     Route: 048
     Dates: start: 20150126, end: 20150220
  3. SOLUPRED                           /00016217/ [Suspect]
     Active Substance: PREDNISOLONE
     Indication: GLIOMA
     Route: 065
     Dates: start: 20141208, end: 20150220
  4. HYDROCORTISONE. [Concomitant]
     Active Substance: HYDROCORTISONE
     Indication: BRAIN STEM GLIOMA
     Route: 065
     Dates: start: 20150220
  5. SOLUPRED                           /00016217/ [Suspect]
     Active Substance: PREDNISOLONE
     Route: 048
     Dates: start: 20150304

REACTIONS (7)
  - Gastrointestinal haemorrhage [Recovering/Resolving]
  - Cauda equina syndrome [Fatal]
  - Hydrocephalus [Recovered/Resolved]
  - Haematemesis [Recovering/Resolving]
  - Abdominal pain [Recovered/Resolved]
  - Pain [Fatal]
  - Vomiting [Recovered/Resolved]

NARRATIVE: CASE EVENT DATE: 201502
